FAERS Safety Report 8797242 (Version 2)
Quarter: 2013Q2

REPORT INFORMATION
  Report Type: Report from Study
  Country: AU (occurrence: AU)
  Receive Date: 20120919
  Receipt Date: 20130417
  Transmission Date: 20140414
  Serious: Yes (Other)
  Sender: FDA-Public Use
  Company Number: AU-ROCHE-1070037

PATIENT
  Age: 67 Year
  Sex: Female
  Weight: 106 kg

DRUGS (27)
  1. TOCILIZUMAB [Suspect]
     Indication: RHEUMATOID ARTHRITIS
     Dosage: VOLUME OF INFUSION GIVEN 100ML
     Route: 042
     Dates: start: 20100908
  2. TOCILIZUMAB [Suspect]
     Route: 042
     Dates: start: 20100201
  3. TOCILIZUMAB [Suspect]
     Route: 065
     Dates: start: 20120124
  4. TOCILIZUMAB [Suspect]
     Route: 065
     Dates: start: 201202
  5. TOCILIZUMAB [Suspect]
     Route: 065
     Dates: start: 20120321
  6. TOCILIZUMAB [Suspect]
     Route: 065
     Dates: start: 20120417
  7. METHOTREXATE [Suspect]
     Indication: RHEUMATOID ARTHRITIS
     Route: 065
     Dates: start: 2008, end: 20120501
  8. MELOXICAM [Concomitant]
     Route: 065
  9. DEXAMETHASONE [Concomitant]
     Route: 065
  10. BETAMETHASONE VALERATE [Concomitant]
     Dosage: 2-3  AS REQUIRED
     Route: 065
  11. BRICANYL [Concomitant]
     Dosage: PUFF
     Route: 065
  12. CALCIUM CITRATE [Concomitant]
     Route: 065
  13. CODALGIN FORTE [Concomitant]
     Route: 065
  14. ENDEP [Concomitant]
     Route: 065
  15. ENDONE [Concomitant]
     Route: 065
  16. FOLIC ACID [Concomitant]
     Route: 065
  17. LEUCOVORIN CALCIUM [Concomitant]
     Dosage: 1/2 PER DAY
     Route: 065
  18. LOSEC (AUSTRALIA) [Concomitant]
     Route: 065
  19. MOTILIUM (AUSTRALIA) [Concomitant]
     Route: 065
  20. OXYCONTIN [Concomitant]
     Route: 065
  21. PANADOL OSTEO [Concomitant]
     Route: 065
  22. PROGYNOVA [Concomitant]
     Route: 065
  23. PULMICORT [Concomitant]
     Dosage: TURBUHALER PUFFS
     Route: 065
  24. RAMIPRIL [Concomitant]
     Route: 065
  25. STEMETIL [Concomitant]
     Route: 065
  26. SYSTANE [Concomitant]
     Route: 065
  27. VISCOTEARS [Concomitant]
     Dosage: LIQUID GEL
     Route: 065

REACTIONS (4)
  - Skin ulcer [Not Recovered/Not Resolved]
  - Wound infection [Recovering/Resolving]
  - Infected skin ulcer [Not Recovered/Not Resolved]
  - Lower respiratory tract infection [Recovered/Resolved]
